FAERS Safety Report 20150550 (Version 1)
Quarter: 2021Q4

REPORT INFORMATION
  Report Type: Spontaneous
  Country: NL (occurrence: NL)
  Receive Date: 20211206
  Receipt Date: 20211206
  Transmission Date: 20220304
  Serious: Yes (Other)
  Sender: FDA-Public Use
  Company Number: None

PATIENT
  Sex: Female
  Weight: 56 kg

DRUGS (3)
  1. SERTRALINE HYDROCHLORIDE [Suspect]
     Active Substance: SERTRALINE HYDROCHLORIDE
     Indication: Anxiety
     Dosage: STRENGTH: 100 MG?1 X PER DAY 1 PIECE
     Dates: start: 20210701
  2. BUDESONIDE\FORMOTEROL [Concomitant]
     Active Substance: BUDESONIDE\FORMOTEROL
     Dosage: STRENGTH: 160/4.5 UG/DO, 160/4.5 MCG 120 DO?160/4.5 (MICROGRAMS PER DOSE)
  3. OXAZEPAM [Concomitant]
     Active Substance: OXAZEPAM
     Dosage: STRENGTH: 5 MG?TABLET, 5 MG (MILLIGRAM)

REACTIONS (2)
  - Autophobia [Not Recovered/Not Resolved]
  - Suicidal ideation [Not Recovered/Not Resolved]
